FAERS Safety Report 8913430 (Version 2)
Quarter: 2012Q4

REPORT INFORMATION
  Report Type: Report from Study
  Country: US (occurrence: US)
  Receive Date: 20121119
  Receipt Date: 20121217
  Transmission Date: 20130627
  Serious: Yes (Death, Hospitalization)
  Sender: FDA-Public Use
  Company Number: US-ASTELLAS-2012US011053

PATIENT
  Age: 78 Year
  Sex: Male
  Weight: 63 kg

DRUGS (15)
  1. ERLOTINIB TABLET [Suspect]
     Indication: METASTASES TO LUNG
     Dosage: 150 mg, UID/QD
     Route: 048
     Dates: start: 20120720, end: 20120720
  2. ERLOTINIB TABLET [Suspect]
     Indication: SQUAMOUS CELL CARCINOMA OF SKIN
  3. DIOVAN [Concomitant]
     Indication: PRODUCT USED FOR UNKNOWN INDICATION
     Dosage: 160 mg, UID/QD
     Route: 065
  4. SYNTHROID [Concomitant]
     Indication: PRODUCT USED FOR UNKNOWN INDICATION
     Dosage: 200 ug, UID/QD
     Route: 048
  5. FOLIC ACID [Concomitant]
     Indication: PRODUCT USED FOR UNKNOWN INDICATION
     Dosage: 400 ug, UID/QD
     Route: 065
  6. CIPRODEX                           /00697202/ [Concomitant]
     Indication: PRODUCT USED FOR UNKNOWN INDICATION
     Dosage: 10 DF, UID/QD 5 drops each ear
     Route: 050
  7. MORPHINE SULFATE [Concomitant]
     Indication: PAIN
     Dosage: 30 mg, Q8 hours
     Route: 048
  8. MSIR [Concomitant]
     Indication: PAIN
     Dosage: 15 mg, Q4-6 hours
     Route: 065
  9. MSIR [Concomitant]
     Dosage: 15 mg, Q6 hours, prn
     Route: 065
     Dates: start: 20120606
  10. AMBIEN [Concomitant]
     Indication: PRODUCT USED FOR UNKNOWN INDICATION
     Dosage: 10 mg, prn
     Route: 065
  11. CENTRUM                            /02217401/ [Concomitant]
     Indication: PRODUCT USED FOR UNKNOWN INDICATION
     Dosage: 1 DF, UID/QD
     Route: 065
  12. VITAMIN D /00107901/ [Concomitant]
     Indication: PRODUCT USED FOR UNKNOWN INDICATION
     Dosage: 400 IU, UID/QD
     Route: 065
  13. STOOL SOFTENER [Concomitant]
     Indication: PRODUCT USED FOR UNKNOWN INDICATION
     Dosage: 1-3 tablets, prn
     Route: 065
  14. GABAPENTIN [Concomitant]
     Indication: PAIN
     Dosage: 300 mg, bid
     Route: 048
  15. MORPHINE [Concomitant]
     Indication: PAIN
     Dosage: 60 mg, Q12 hours
     Route: 048
     Dates: start: 20120606

REACTIONS (3)
  - Pulmonary haemorrhage [Fatal]
  - Malignant neoplasm progression [Fatal]
  - Respiratory failure [Fatal]
